FAERS Safety Report 13595435 (Version 1)
Quarter: 2017Q2

REPORT INFORMATION
  Report Type: Other
  Country: GB (occurrence: GB)
  Receive Date: 20170531
  Receipt Date: 20170531
  Transmission Date: 20170830
  Serious: Yes (Hospitalization, Other)
  Sender: FDA-Public Use
  Company Number: GB-APOTEX-2017AP012303

PATIENT
  Age: 32 Year
  Sex: Male

DRUGS (2)
  1. CLOPIDOGREL APOTEX [Suspect]
     Active Substance: CLOPIDOGREL BISULFATE
     Indication: PRODUCT USED FOR UNKNOWN INDICATION
     Dosage: UNK
     Route: 065
  2. FABRAZYME [Suspect]
     Active Substance: AGALSIDASE BETA
     Indication: PRODUCT USED FOR UNKNOWN INDICATION
     Dosage: 120 MG, 1 IN EVERY 2 WEEKS
     Route: 042

REACTIONS (4)
  - Palpitations [Recovered/Resolved]
  - Dyspnoea [Recovered/Resolved]
  - Heart rate increased [Recovered/Resolved]
  - Atrial fibrillation [Recovered/Resolved]

NARRATIVE: CASE EVENT DATE: 20170202
